FAERS Safety Report 10021520 (Version 1)
Quarter: 2014Q1

REPORT INFORMATION
  Report Type: Spontaneous
  Country: US (occurrence: None)
  Receive Date: 20140318
  Receipt Date: 20140318
  Transmission Date: 20141002
  Serious: Yes (Other)
  Sender: FDA-Public Use
  Company Number: None

PATIENT
  Age: 50 Year
  Sex: Male
  Weight: 93.44 kg

DRUGS (1)
  1. CHANTIX [Suspect]
     Indication: SMOKING CESSATION THERAPY
     Dosage: 1 TAB, BID, ORAL
     Route: 048
     Dates: start: 20140121, end: 20140311

REACTIONS (4)
  - Flat affect [None]
  - Aggression [None]
  - Depression [None]
  - Suicidal behaviour [None]
